FAERS Safety Report 24665697 (Version 4)
Quarter: 2025Q1

REPORT INFORMATION
  Report Type: Spontaneous
  Country: US (occurrence: US)
  Receive Date: 20241126
  Receipt Date: 20250129
  Transmission Date: 20250409
  Serious: Yes (Other)
  Sender: PFIZER
  Company Number: US-PFIZER INC-202400290190

PATIENT
  Age: 71 Year
  Sex: Female

DRUGS (1)
  1. XELJANZ XR [Suspect]
     Active Substance: TOFACITINIB CITRATE

REACTIONS (5)
  - Cerebrovascular accident [Recovering/Resolving]
  - Malaise [Unknown]
  - Thinking abnormal [Unknown]
  - Blood pressure abnormal [Unknown]
  - Heart rate abnormal [Unknown]
